FAERS Safety Report 4780658-8 (Version None)
Quarter: 2005Q3

REPORT INFORMATION
  Report Type: 
  Country: None (occurrence: None)
  Receive Date: 20050926
  Receipt Date: 20050902
  Transmission Date: 20060218
  Serious: Yes (Hospitalization, Other)
  Sender: FDA-Public Use
  Company Number: 2005123755

PATIENT
  Age: 41 Year
  Sex: Female
  Weight: 95.2554 kg

DRUGS (3)
  1. BEXTRA [Suspect]
     Indication: BACK PAIN
     Dates: start: 20040224, end: 20040306
  2. LIDOCAINE HCL INJ [Suspect]
     Indication: BACK PAIN
     Dosage: PARENTERAL
     Route: 051
     Dates: start: 20040303, end: 20040303
  3. CORTICOSTEROIDS (CORTICOSTEROIDS) [Suspect]
     Indication: BACK PAIN

REACTIONS (4)
  - ADNEXA UTERI MASS [None]
  - ERYTHEMA MULTIFORME [None]
  - STEVENS-JOHNSON SYNDROME [None]
  - TOXIC EPIDERMAL NECROLYSIS [None]
